FAERS Safety Report 14113029 (Version 7)
Quarter: 2018Q3

REPORT INFORMATION
  Report Type: Spontaneous
  Country: DE (occurrence: DE)
  Receive Date: 20171022
  Receipt Date: 20180827
  Transmission Date: 20181010
  Serious: Yes (Life-Threatening, Hospitalization, Disabling, Other)
  Sender: FDA-Public Use
  Company Number: PHHY2017DE152316

PATIENT
  Age: 57 Year
  Sex: Female
  Weight: 59 kg

DRUGS (8)
  1. COSENTYX [Suspect]
     Active Substance: SECUKINUMAB
     Dosage: 150 MG, QMO (4 WEEKS)
     Route: 058
     Dates: start: 20170731
  2. COSENTYX [Suspect]
     Active Substance: SECUKINUMAB
     Dosage: 150 MG, QMO (EVERY 4 WEEKS)
     Route: 058
     Dates: start: 20170828
  3. METOPROLOL. [Concomitant]
     Active Substance: METOPROLOL
     Indication: ARRHYTHMIA
     Dosage: 42.5 MG, QD
     Route: 048
  4. L THYROXIN [Concomitant]
     Active Substance: LEVOTHYROXINE SODIUM
     Indication: THYROID DISORDER
     Dosage: 50 UG, QD
     Route: 048
  5. FLUNARICINA [Concomitant]
     Indication: MIGRAINE
     Dosage: 5 MG, QD
     Route: 048
     Dates: start: 2013
  6. FLUNARICINA [Concomitant]
     Indication: PSORIASIS
  7. COSENTYX [Suspect]
     Active Substance: SECUKINUMAB
     Indication: PSORIATIC ARTHROPATHY
     Dosage: 150 MG, QW
     Route: 058
     Dates: start: 20170508
  8. COSENTYX [Suspect]
     Active Substance: SECUKINUMAB
     Indication: PSORIASIS
     Dosage: 150 MG, QW
     Route: 058
     Dates: start: 201706

REACTIONS (28)
  - Deafness [Not Recovered/Not Resolved]
  - Fatigue [Not Recovered/Not Resolved]
  - Otitis media [Not Recovered/Not Resolved]
  - Tympanic membrane perforation [Not Recovered/Not Resolved]
  - Excessive granulation tissue [Unknown]
  - Balance disorder [Not Recovered/Not Resolved]
  - Oropharyngeal pain [Recovered/Resolved with Sequelae]
  - External ear inflammation [Unknown]
  - Middle ear inflammation [Not Recovered/Not Resolved]
  - General physical health deterioration [Unknown]
  - Nasopharyngitis [Recovered/Resolved]
  - Pharyngitis [Not Recovered/Not Resolved]
  - Noninfective gingivitis [Recovering/Resolving]
  - Otitis externa [Not Recovered/Not Resolved]
  - Vertigo [Unknown]
  - Periodontitis [Unknown]
  - Ear pain [Not Recovered/Not Resolved]
  - Inner ear disorder [Not Recovered/Not Resolved]
  - Otitis media [Not Recovered/Not Resolved]
  - Headache [Not Recovered/Not Resolved]
  - Presbyacusis [Not Recovered/Not Resolved]
  - Influenza [Not Recovered/Not Resolved]
  - Inner ear inflammation [Not Recovered/Not Resolved]
  - Tonsillitis [Not Recovered/Not Resolved]
  - Conjunctivitis [Recovered/Resolved]
  - Dizziness [Recovering/Resolving]
  - Influenza like illness [Recovering/Resolving]
  - Ear injury [Unknown]

NARRATIVE: CASE EVENT DATE: 20170515
